FAERS Safety Report 9525022 (Version 5)
Quarter: 2014Q3

REPORT INFORMATION
  Report Type: Report from Study
  Country: US (occurrence: US)
  Receive Date: 20130916
  Receipt Date: 20140926
  Transmission Date: 20150326
  Serious: Yes (Other)
  Sender: FDA-Public Use
  Company Number: US-IPSEN BIOPHARMACEUTICALS, INC.-2013-3358

PATIENT
  Age: 34 Year
  Sex: Male
  Weight: 122.5 kg

DRUGS (4)
  1. TOPAMAX [Concomitant]
     Active Substance: TOPIRAMATE
     Indication: PRODUCT USED FOR UNKNOWN INDICATION
     Dosage: NOT REPORTED
     Route: 065
  2. IMITREX [Concomitant]
     Active Substance: SUMATRIPTAN\SUMATRIPTAN SUCCINATE
     Indication: PRODUCT USED FOR UNKNOWN INDICATION
     Dosage: NOT REPORTED
     Route: 065
  3. SOMATULINE DEPOT [Suspect]
     Active Substance: LANREOTIDE ACETATE
     Indication: ACROMEGALY
     Dosage: 120 MG
     Route: 058
     Dates: start: 20130111, end: 20130731
  4. SOMATULINE DEPOT [Suspect]
     Active Substance: LANREOTIDE ACETATE
     Dosage: 120 MG
     Route: 058
     Dates: start: 201310

REACTIONS (13)
  - Headache [Not Recovered/Not Resolved]
  - Feeling abnormal [Not Recovered/Not Resolved]
  - Insomnia [Not Recovered/Not Resolved]
  - Blood urea increased [None]
  - Pituitary tumour [Unknown]
  - Swollen tongue [Not Recovered/Not Resolved]
  - Low density lipoprotein increased [None]
  - Insulin-like growth factor increased [Recovered/Resolved]
  - Blood glucose increased [None]
  - Inappropriate schedule of drug administration [None]
  - Anion gap increased [None]
  - Drug ineffective [Unknown]
  - Carbon dioxide increased [None]

NARRATIVE: CASE EVENT DATE: 201305
